FAERS Safety Report 14987890 (Version 1)
Quarter: 2018Q2

REPORT INFORMATION
  Report Type: Spontaneous
  Country: DE (occurrence: DE)
  Receive Date: 20180608
  Receipt Date: 20180608
  Transmission Date: 20180711
  Serious: Yes (Hospitalization)
  Sender: FDA-Public Use
  Company Number: DE-TEVA-2018-DE-902425

PATIENT
  Age: 76 Year
  Sex: Female

DRUGS (7)
  1. CARBIDOPA AND LEVODOPA [Suspect]
     Active Substance: CARBIDOPA\LEVODOPA
     Dosage: 100|25 MG, 1-1-1-0
     Route: 065
  2. CANDESARTAN. [Suspect]
     Active Substance: CANDESARTAN
     Dosage: 8 MILLIGRAM DAILY; 1-0-0-0
     Route: 065
  3. ROTIGOTINE [Suspect]
     Active Substance: ROTIGOTINE
     Dosage: 40 MILLIGRAM DAILY; 1-0-0-0
     Route: 065
  4. ACETYLSALICYLIC ACID [Concomitant]
     Active Substance: ASPIRIN
     Dosage: 100 MILLIGRAM DAILY; 0-1-0-0
  5. TORASEMIDE [Suspect]
     Active Substance: TORSEMIDE
     Dosage: .5 MILLIGRAM DAILY; 10 MG, 0.5-0-0-0
     Route: 065
  6. SIMVASTATIN. [Concomitant]
     Active Substance: SIMVASTATIN
     Dosage: NK
  7. PANTOPRAZOLE [Concomitant]
     Active Substance: PANTOPRAZOLE
     Dosage: 40 MILLIGRAM DAILY; 0-0-1-0

REACTIONS (2)
  - Loss of consciousness [Unknown]
  - Syncope [Unknown]
